FAERS Safety Report 6291445-6 (Version None)
Quarter: 2009Q3

REPORT INFORMATION
  Report Type: 
  Country: None (occurrence: None)
  Receive Date: 20090730
  Receipt Date: 20080103
  Transmission Date: 20100115
  Serious: Yes (Life-Threatening, Hospitalization, Other)
  Sender: FDA-Public Use
  Company Number: FR-PFIZER INC-2008001742

PATIENT
  Age: 95 Year

DRUGS (3)
  1. LYRICA [Suspect]
     Indication: HERPES ZOSTER
     Dosage: 75 MG, 2X/DAY
     Dates: end: 20080103
  2. LASIX [Suspect]
  3. SKENAN [Concomitant]

REACTIONS (8)
  - ASTERIXIS [None]
  - BRAIN HYPOXIA [None]
  - DYSPNOEA [None]
  - ENCEPHALOPATHY [None]
  - HYPERKALAEMIA [None]
  - HYPONATRAEMIA [None]
  - MYOCLONUS [None]
  - PULMONARY HYPERTENSION [None]
